FAERS Safety Report 5298847-5 (Version None)
Quarter: 2007Q2

REPORT INFORMATION
  Report Type: 
  Country: None (occurrence: None)
  Receive Date: 20070410
  Receipt Date: 20070403
  Transmission Date: 20071010
  Serious: Yes (Hospitalization)
  Sender: FDA-Public Use
  Company Number: A0645787A

PATIENT
  Age: 37 Year
  Sex: Female

DRUGS (2)
  1. LAMICTAL [Suspect]
     Indication: BIPOLAR DISORDER
     Dosage: 100 MG/PER DAY/ORAL
     Route: 048
     Dates: start: 20050104
  2. WELLBUTRIN SR [Suspect]
     Indication: DEPRESSION
     Dosage: 200 MG/TWICE PER DAY/ORAL
     Route: 048
     Dates: start: 20000101

REACTIONS (3)
  - ABORTION SPONTANEOUS [None]
  - DRUG EXPOSURE DURING PREGNANCY [None]
  - PREGNANCY [None]
